FAERS Safety Report 7505523-4 (Version None)
Quarter: 2011Q2

REPORT INFORMATION
  Report Type: 
  Country: None (occurrence: None)
  Receive Date: 20110526
  Receipt Date: 20110517
  Transmission Date: 20111010
  Serious: Yes (Hospitalization, Other)
  Sender: FDA-Public Use
  Company Number: RU-SANOFI-AVENTIS-2011SA031337

PATIENT
  Sex: Female

DRUGS (4)
  1. TRIAMPUR [Concomitant]
     Dosage: 1 TABLET
     Route: 065
  2. PREDNISOLONE [Suspect]
     Indication: CERVICAL INCOMPETENCE
     Route: 065
  3. FUROSEMIDE [Suspect]
     Indication: WEIGHT CONTROL
     Route: 048
     Dates: start: 20040101
  4. FUROSEMIDE [Suspect]
     Route: 048

REACTIONS (12)
  - JOINT STIFFNESS [None]
  - ARTHRITIS [None]
  - DRUG EXPOSURE DURING PREGNANCY [None]
  - GOUTY TOPHUS [None]
  - ARTHRALGIA [None]
  - PYREXIA [None]
  - HYPERURICAEMIA [None]
  - WEIGHT INCREASED [None]
  - MUSCLE SPASMS [None]
  - RENAL FAILURE CHRONIC [None]
  - GOUTY ARTHRITIS [None]
  - ASTHENIA [None]
